FAERS Safety Report 18308171 (Version 1)
Quarter: 2020Q3

REPORT INFORMATION
  Report Type: Spontaneous
  Country: US (occurrence: US)
  Receive Date: 20200924
  Receipt Date: 20200924
  Transmission Date: 20201103
  Serious: Yes (Hospitalization)
  Sender: FDA-Public Use
  Company Number: US-MYLANLABS-2020M1081153

PATIENT
  Age: 20 Year
  Sex: Male

DRUGS (12)
  1. ARIPIPRAZOLE. [Interacting]
     Active Substance: ARIPIPRAZOLE
     Indication: PSYCHOTIC DISORDER
     Dosage: 2 MILLIGRAM, QD
     Route: 065
  2. DIAZEPAM. [Interacting]
     Active Substance: DIAZEPAM
     Indication: FOCAL DYSCOGNITIVE SEIZURES
  3. LITHIUM. [Suspect]
     Active Substance: LITHIUM
     Indication: PSYCHOTIC DISORDER
     Route: 065
  4. QUETIAPINE. [Interacting]
     Active Substance: QUETIAPINE
     Dosage: 600 MILLIGRAM, IMMEDIATE RELEASE; AT BEDTIME
     Route: 065
  5. OXCARBAZEPINE. [Interacting]
     Active Substance: OXCARBAZEPINE
     Indication: FOCAL DYSCOGNITIVE SEIZURES
     Dosage: 1200 MILLIGRAM, BID
     Route: 065
  6. LACOSAMIDE. [Interacting]
     Active Substance: LACOSAMIDE
     Indication: FOCAL DYSCOGNITIVE SEIZURES
     Dosage: 200 MILLIGRAM, BID
     Route: 065
  7. LORAZEPAM. [Suspect]
     Active Substance: LORAZEPAM
     Indication: ANXIETY
     Dosage: 1 MILLIGRAM, TID, 3 TIMES DAILY
     Route: 065
  8. DIAZEPAM. [Interacting]
     Active Substance: DIAZEPAM
     Indication: ANXIETY
     Dosage: 15 MILLIGRAM, AT BEDTIME
     Route: 065
  9. LORAZEPAM. [Suspect]
     Active Substance: LORAZEPAM
     Indication: FOCAL DYSCOGNITIVE SEIZURES
  10. QUETIAPINE. [Interacting]
     Active Substance: QUETIAPINE
     Indication: PSYCHOTIC DISORDER
     Dosage: 200 MILLIGRAM, BID, IMMEDIATE RELEASE
     Route: 065
  11. QUETIAPINE. [Interacting]
     Active Substance: QUETIAPINE
     Dosage: 800 MILLIGRAM, AT BEDTIME
     Route: 065
  12. LEVETIRACETAM. [Interacting]
     Active Substance: LEVETIRACETAM
     Indication: FOCAL DYSCOGNITIVE SEIZURES
     Dosage: 1000 MILLIGRAM, BID, LEVETIRACETAM EXTENDED RELEASE
     Route: 065

REACTIONS (12)
  - Off label use [Unknown]
  - Drug interaction [Unknown]
  - Agranulocytosis [Unknown]
  - Anxiety [Recovering/Resolving]
  - Affective disorder [Recovering/Resolving]
  - Leukopenia [Unknown]
  - Psychotic disorder [Recovering/Resolving]
  - Weight increased [Unknown]
  - Drug ineffective for unapproved indication [Unknown]
  - Sedation [Unknown]
  - Neutropenia [Recovered/Resolved]
  - Depression [Recovering/Resolving]
